FAERS Safety Report 8136558 (Version 2)
Quarter: 2012Q4

REPORT INFORMATION
  Report Type: Report from Study
  Country: FR (occurrence: BR)
  Receive Date: 20110914
  Receipt Date: 20120829
  Transmission Date: 20130627
  Serious: Yes (Other)
  Sender: FDA-Public Use
  Company Number: BR-GILEAD-2011-0043610

PATIENT
  Age: 52 Year
  Sex: Male

DRUGS (11)
  1. TENOFOVIR DISOPROXIL FUMARATE [Suspect]
     Indication: HIV INFECTION
     Dosage: UNK
     Dates: start: 20110226, end: 20110627
  2. ZIDOVUDINE W/LAMIVUDINE [Suspect]
     Indication: HIV INFECTION
     Dosage: 900 mg, QD
     Route: 048
     Dates: start: 20110628, end: 20110822
  3. LAMIVUDINE [Suspect]
     Indication: HIV INFECTION
     Dosage: 300 mg, QD
     Route: 048
     Dates: start: 20110226, end: 20110627
  4. LAMIVUDINE [Suspect]
     Dosage: 300 mg, QD
     Route: 048
     Dates: start: 20110822
  5. RALTEGRAVIR [Suspect]
     Indication: HIV INFECTION
     Dosage: 800 mg, QD
     Route: 048
     Dates: start: 20110226, end: 20120203
  6. ENALAPRIL [Concomitant]
     Indication: PROTEINURIA
     Dosage: UNK
     Dates: start: 20110615
  7. AMITRIPTYLINE [Concomitant]
     Indication: NEUROPATHY PERIPHERAL
     Dosage: UNK
     Dates: start: 20110419
  8. BACTRIM [Concomitant]
     Indication: ANTIFUNGAL PROPHYLAXIS
     Dosage: UNK
     Dates: start: 20110114
  9. OMEPRAZOLE [Concomitant]
     Indication: HIATUS HERNIA
     Dosage: UNK
     Dates: start: 20110323
  10. CLONAZEPAM [Concomitant]
     Indication: ANXIETY
     Dosage: UNK
     Dates: start: 20110214
  11. VITAMIN B6 [Concomitant]
     Indication: PARAESTHESIA
     Dosage: UNK
     Dates: start: 20110323

REACTIONS (1)
  - Anaemia [Recovered/Resolved]
